FAERS Safety Report 20717475 (Version 1)
Quarter: 2022Q2

REPORT INFORMATION
  Report Type: Spontaneous
  Country: FR (occurrence: FR)
  Receive Date: 20220417
  Receipt Date: 20220417
  Transmission Date: 20220721
  Serious: Yes (Hospitalization)
  Sender: FDA-Public Use
  Company Number: None

PATIENT
  Age: 61 Year
  Sex: Male
  Weight: 148.5 kg

DRUGS (2)
  1. ATENOLOL [Suspect]
     Active Substance: ATENOLOL
     Indication: Intentional overdose
     Dosage: 50 MG, UNIT DOSE : 12 DOSAGE FORMS , THERAPY DURATION : 1 DAYS
     Route: 048
     Dates: start: 20220311, end: 20220311
  2. ETHYL ALCOHOL [Suspect]
     Active Substance: ALCOHOL
     Indication: Poisoning deliberate
     Dosage: NP, THERAPY DURATION : 1 DAYS
     Route: 048
     Dates: start: 20220311, end: 20220311

REACTIONS (2)
  - Bradycardia [Recovered/Resolved]
  - Intentional overdose [Recovered/Resolved]

NARRATIVE: CASE EVENT DATE: 20220311
